FAERS Safety Report 8240335-8 (Version None)
Quarter: 2012Q1

REPORT INFORMATION
  Report Type: 
  Country: None (occurrence: None)
  Receive Date: 20120309
  Receipt Date: 20110303
  Transmission Date: 20120608
  Serious: Yes (Other)
  Sender: FDA-Public Use
  Company Number: PHHY2010US83152

PATIENT
  Age: 57 Year
  Sex: Male

DRUGS (3)
  1. EXTAVIA [Suspect]
     Indication: MULTIPLE SCLEROSIS
     Dosage: 0.25 MG, QOD, SUBCUTANEOUS
     Route: 058
     Dates: start: 20091201
  2. AMPYRA [Concomitant]
  3. ZOLOFT [Concomitant]

REACTIONS (7)
  - BACK PAIN [None]
  - KIDNEY INFECTION [None]
  - FATIGUE [None]
  - MUSCULAR WEAKNESS [None]
  - DEPRESSION [None]
  - FALL [None]
  - NAUSEA [None]
